FAERS Safety Report 6374397-X (Version None)
Quarter: 2009Q3

REPORT INFORMATION
  Report Type: 
  Country: None (occurrence: None)
  Receive Date: 20090921
  Receipt Date: 20090911
  Transmission Date: 20100115
  Serious: Yes (Other)
  Sender: FDA-Public Use
  Company Number: 2009S1016060

PATIENT
  Age: 23 Year
  Sex: Male

DRUGS (2)
  1. AMNESTEEM [Suspect]
     Indication: ACNE
     Dosage: 10MG;DAILY;ORAL
     Route: 048
     Dates: start: 20090101
  2. SOTRET [Suspect]
     Dosage: 10 MG;DAILY; ORAL
     Route: 048

REACTIONS (1)
  - PREGNANCY OF PARTNER [None]
